FAERS Safety Report 8270488-7 (Version None)
Quarter: 2012Q2

REPORT INFORMATION
  Report Type: 
  Country: None (occurrence: None)
  Receive Date: 20120410
  Receipt Date: 20120403
  Transmission Date: 20120825
  Serious: Yes (Other)
  Sender: FDA-Public Use
  Company Number: PL-ASTELLAS-2012US001698

PATIENT
  Sex: Female

DRUGS (1)
  1. TACROLIMUS [Suspect]
     Indication: DERMATITIS ATOPIC
     Dosage: 0.1 %, UNKNOWN/D
     Route: 061
     Dates: start: 20060123

REACTIONS (2)
  - OFF LABEL USE [None]
  - NEPHROLITHIASIS [None]
